FAERS Safety Report 5677196-7 (Version None)
Quarter: 2008Q1

REPORT INFORMATION
  Report Type: 
  Country: None (occurrence: None)
  Receive Date: 20080318
  Receipt Date: 20080304
  Transmission Date: 20080703
  Serious: Yes (Other)
  Sender: FDA-Public Use
  Company Number: PHEH2008US01288

PATIENT
  Age: 71 Year
  Sex: Female
  Weight: 58.9676 kg

DRUGS (1)
  1. VISUDYNE [Suspect]
     Dosage: 9.5 MG DAILY IV
     Route: 042
     Dates: start: 20071101, end: 20071101

REACTIONS (1)
  - RAYNAUD'S PHENOMENON [None]
